FAERS Safety Report 13821989 (Version 2)
Quarter: 2017Q3

REPORT INFORMATION
  Report Type: Spontaneous
  Country: US (occurrence: US)
  Receive Date: 20170801
  Receipt Date: 20170807
  Transmission Date: 20171127
  Serious: Yes (Other)
  Sender: FDA-Public Use
  Company Number: US-SA-2017SA136510

PATIENT
  Age: 37 Year
  Sex: Female

DRUGS (1)
  1. ICY HOT MEDICATED NO MESS APPLICATOR [Suspect]
     Active Substance: MENTHOL
     Route: 065

REACTIONS (3)
  - Blister [Unknown]
  - Skin exfoliation [Unknown]
  - Burns second degree [Unknown]
